FAERS Safety Report 6085584-2 (Version None)
Quarter: 2009Q1

REPORT INFORMATION
  Report Type: 
  Country: None (occurrence: None)
  Receive Date: 20090217
  Receipt Date: 20090217
  Transmission Date: 20090719
  Serious: Yes (Hospitalization)
  Sender: FDA-Public Use
  Company Number: None

PATIENT
  Age: 39 Year
  Sex: Male
  Weight: 59 kg

DRUGS (1)
  1. VANCOMYCIN [Suspect]
     Dosage: IV
     Route: 042

REACTIONS (3)
  - DIALYSIS [None]
  - DRUG LEVEL INCREASED [None]
  - HAEMODIALYSIS [None]
